FAERS Safety Report 11762294 (Version 1)
Quarter: 2015Q4

REPORT INFORMATION
  Report Type: Spontaneous
  Country: US (occurrence: US)
  Receive Date: 20151120
  Receipt Date: 20151120
  Transmission Date: 20160304
  Serious: No
  Sender: FDA-Public Use
  Company Number: US-ELI_LILLY_AND_COMPANY-US201301008012

PATIENT
  Sex: Female

DRUGS (1)
  1. FORTEO [Suspect]
     Active Substance: TERIPARATIDE
     Indication: OSTEOPOROSIS
     Dosage: UNK, QD
     Route: 065

REACTIONS (8)
  - Malaise [Unknown]
  - Fatigue [Unknown]
  - Sneezing [Unknown]
  - Cough [Unknown]
  - Vomiting [Unknown]
  - Blood calcium increased [Unknown]
  - Retching [Unknown]
  - Asthenia [Unknown]
